FAERS Safety Report 6645839-7 (Version None)
Quarter: 2010Q1

REPORT INFORMATION
  Report Type: 
  Country: None (occurrence: None)
  Receive Date: 20100323
  Receipt Date: 20100309
  Transmission Date: 20100710
  Serious: Yes (Death, Life-Threatening, Hospitalization, Other)
  Sender: FDA-Public Use
  Company Number: US-TYCO HEALTHCARE/MALLINCKRODT-T200701562

PATIENT

DRUGS (24)
  1. OPTIMARK [Suspect]
     Indication: NUCLEAR MAGNETIC RESONANCE IMAGING BRAIN
     Dosage: UNK, SINGLE
     Dates: start: 20010907, end: 20010907
  2. OMNISCAN [Suspect]
     Indication: NUCLEAR MAGNETIC RESONANCE IMAGING BRAIN
     Dosage: UNK, SINGLE
     Dates: start: 20010910, end: 20010910
  3. OMNISCAN [Suspect]
     Indication: FISTULOGRAM
     Dosage: UNK, SINGLE
     Dates: start: 20010918, end: 20010918
  4. OMNISCAN [Suspect]
     Indication: VENOGRAM
     Dosage: UNK, SINGLE
     Dates: start: 20010927, end: 20010927
  5. OMNISCAN [Suspect]
     Indication: ANGIOGRAM
     Dosage: UNK, SINGLE
     Dates: start: 20011129, end: 20011129
  6. OMNISCAN [Suspect]
     Dosage: UNK, SINGLE
     Dates: start: 20020227, end: 20020227
  7. GADOLINIUM [Suspect]
     Indication: VENOGRAM
     Dosage: UNK, SINGLE
     Dates: start: 19991007, end: 19991007
  8. GADOLINIUM [Suspect]
     Indication: NUCLEAR MAGNETIC RESONANCE IMAGING
     Dosage: UNK, SINGLE
     Dates: start: 20000227, end: 20000227
  9. GADOLINIUM [Suspect]
     Indication: ANGIOPLASTY
     Dosage: UNK, SINGLE
     Dates: start: 20061109, end: 20061109
  10. GADOLINIUM [Suspect]
     Indication: FISTULOGRAM
     Dosage: UNK, SINGLE
     Dates: start: 20090109, end: 20090109
  11. OMNIPAQUE 140 [Suspect]
     Indication: COMPUTERISED TOMOGRAM
     Dosage: UNK, SINGLE
     Dates: start: 20010911, end: 20010911
  12. OMNIPAQUE 140 [Suspect]
     Indication: VENOGRAM
     Dosage: UNK, SINGLE
     Dates: start: 20010912, end: 20010912
  13. OMNIPAQUE 140 [Suspect]
     Indication: FISTULOGRAM
     Dosage: UNK, SINGLE
     Dates: start: 20010926, end: 20010926
  14. VICODIN [Concomitant]
     Indication: PAIN
     Dosage: 1-2 Q8 PRN
  15. DEXAMETHASONE [Concomitant]
     Dosage: 4 MG Q 6 HOURS
     Route: 042
  16. AMPHOJEL                           /00057402/ [Concomitant]
     Dosage: TWO 500 MG TID WITH MEALS
     Route: 048
  17. NEPHROVITE [Concomitant]
     Dosage: ONE QD
     Route: 048
  18. CHLORAMPHENICOL [Concomitant]
     Dosage: 1 GRAM Q6
     Route: 042
  19. TEMAZEPAM [Concomitant]
     Dosage: 15 MG AT BEDTIME
     Route: 048
  20. EPOGEN [Concomitant]
     Dosage: 2500 UNITS WITH DIALYSIS
     Route: 042
  21. ZANTAC                             /00550802/ [Concomitant]
     Dosage: 150 MG QID
     Route: 048
  22. MORPHINE [Concomitant]
     Dosage: 0.5 - 1.0 MG Q1-2 HOUR PRN
     Route: 042
  23. IBUPROFEN [Concomitant]
     Dosage: 600 MG Q6 PRN
     Route: 048
  24. TYLENOL (CAPLET) [Concomitant]
     Dosage: 500 - 1000 MG Q6 HR PRN

REACTIONS (41)
  - ABDOMINAL PAIN [None]
  - ANAEMIA [None]
  - AORTIC STENOSIS [None]
  - AORTIC VALVE INCOMPETENCE [None]
  - ASTHENIA [None]
  - BACTERAEMIA [None]
  - BONE PAIN [None]
  - BRONCHOPNEUMONIA [None]
  - CARDIAC FAILURE CONGESTIVE [None]
  - CEREBRAL ARTERY EMBOLISM [None]
  - DEPRESSION [None]
  - DIARRHOEA [None]
  - DRUG PRESCRIBING ERROR [None]
  - DUODENAL ULCER [None]
  - ENDOCARDITIS BACTERIAL [None]
  - EPIDERMAL NECROSIS [None]
  - HAEMATOCHEZIA [None]
  - HELICOBACTER TEST POSITIVE [None]
  - HEPATIC STEATOSIS [None]
  - HYPERCALCAEMIA [None]
  - HYPOTENSION [None]
  - JOINT SWELLING [None]
  - LEUKOCYTOSIS [None]
  - MENINGITIS [None]
  - MITRAL VALVE CALCIFICATION [None]
  - MITRAL VALVE INCOMPETENCE [None]
  - MYOCARDIAL INFARCTION [None]
  - NAUSEA [None]
  - NEPHROGENIC SYSTEMIC FIBROSIS [None]
  - OESOPHAGEAL ULCER [None]
  - PARAESTHESIA [None]
  - PLEURAL EFFUSION [None]
  - PULMONARY EMBOLISM [None]
  - PULMONARY HYPERTENSION [None]
  - PYREXIA [None]
  - RESPIRATORY FAILURE [None]
  - SEPSIS [None]
  - SKIN ULCER [None]
  - TRICUSPID VALVE INCOMPETENCE [None]
  - VOMITING [None]
  - WEIGHT DECREASED [None]
